FAERS Safety Report 5345782-X (Version None)
Quarter: 2007Q2

REPORT INFORMATION
  Report Type: 
  Country: None (occurrence: None)
  Receive Date: 20070605
  Receipt Date: 20070529
  Transmission Date: 20071010
  Serious: Yes (Life-Threatening, Hospitalization, Disabling)
  Sender: FDA-Public Use
  Company Number: US-GENENTECH-241522

PATIENT
  Sex: Male
  Weight: 72.562 kg

DRUGS (6)
  1. RITUXAN [Suspect]
     Indication: LYMPHOMA
     Dosage: 814 MG, Q3W X 6
     Route: 042
  2. CYCLOPHOSPHAMIDE [Concomitant]
     Indication: LYMPHOMA
  3. DOXORUBICIN HCL [Concomitant]
     Indication: LYMPHOMA
     Dosage: 109 MG, UNK
  4. VINCRISTINE [Concomitant]
     Indication: LYMPHOMA
     Dosage: 2 MG, UNK
  5. PREDNISONE TAB [Concomitant]
     Indication: LYMPHOMA
  6. NEULASTA [Concomitant]
     Indication: DRUG USE FOR UNKNOWN INDICATION
     Dosage: 6 MG, UNK

REACTIONS (3)
  - CACHEXIA [None]
  - INAPPROPRIATE ANTIDIURETIC HORMONE SECRETION [None]
  - MONONEUROPATHY MULTIPLEX [None]
